FAERS Safety Report 5223722-1 (Version None)
Quarter: 2007Q1

REPORT INFORMATION
  Report Type: 
  Country: None (occurrence: None)
  Receive Date: 20070130
  Receipt Date: 20070117
  Transmission Date: 20070707
  Serious: Yes (Other)
  Sender: FDA-Public Use
  Company Number: DEWYE206617JAN07

PATIENT
  Sex: Male

DRUGS (3)
  1. ENBREL [Suspect]
     Indication: DRUG USE FOR UNKNOWN INDICATION
     Route: 058
     Dates: start: 20060911, end: 20061126
  2. ENBREL [Suspect]
     Route: 058
     Dates: start: 20061127
  3. TRIAMCINOLONE [Concomitant]
     Dosage: UNKNOWN
     Route: 061

REACTIONS (3)
  - DRUG EFFECT DECREASED [None]
  - OSTEONECROSIS [None]
  - SKIN DISORDER [None]
